FAERS Safety Report 9868476 (Version 2)
Quarter: 2014Q4

REPORT INFORMATION
  Report Type: Spontaneous
  Country: SE (occurrence: SE)
  Receive Date: 20140204
  Receipt Date: 20141023
  Transmission Date: 20150529
  Serious: Yes (Hospitalization)
  Sender: FDA-Public Use
  Company Number: SE-PFIZER INC-2014031687

PATIENT
  Age: 45 Year
  Sex: Female

DRUGS (6)
  1. ANTABUSE [Concomitant]
     Active Substance: DISULFIRAM
  2. ALVEDON [Concomitant]
     Active Substance: ACETAMINOPHEN
     Dosage: 665 MG, UNK
  3. CITALOPRAM [Concomitant]
     Active Substance: CITALOPRAM HYDROBROMIDE
     Dosage: 40 MG, 1X/DAY
  4. LYRICA [Suspect]
     Active Substance: PREGABALIN
     Dosage: 50 MG, 6 CAPSULES DAILY (2+1+2+1)
  5. LYRICA [Suspect]
     Active Substance: PREGABALIN
     Dosage: 50 MG, 10 CAPSULES
     Dates: start: 20131129, end: 20131129
  6. PROPAVAN [Concomitant]
     Active Substance: PROPIOMAZINE
     Dosage: 25 MG, UNK

REACTIONS (2)
  - Toxicity to various agents [Recovered/Resolved]
  - Intentional self-injury [Recovered/Resolved]

NARRATIVE: CASE EVENT DATE: 20131129
